FAERS Safety Report 17454683 (Version 1)
Quarter: 2020Q1

REPORT INFORMATION
  Report Type: Spontaneous
  Country: FR (occurrence: FR)
  Receive Date: 20200225
  Receipt Date: 20200225
  Transmission Date: 20200409
  Serious: Yes (Hospitalization)
  Sender: FDA-Public Use
  Company Number: FR-ROCHE-2554569

PATIENT
  Age: 57 Year
  Sex: Male
  Weight: 55.8 kg

DRUGS (8)
  1. BROMAZEPAM [Suspect]
     Active Substance: BROMAZEPAM
     Indication: AGITATION
     Route: 048
  2. XATRAL [Concomitant]
     Active Substance: ALFUZOSIN
  3. GARDENAL [PHENOBARBITAL] [Suspect]
     Active Substance: PHENOBARBITAL
     Indication: EPILEPSY
     Route: 048
  4. FORLAX [MACROGOL 4000] [Concomitant]
     Active Substance: POLYETHYLENE GLYCOL 4000
  5. VALIUM [Suspect]
     Active Substance: DIAZEPAM
     Indication: EPILEPSY
     Route: 048
  6. URBANYL [Suspect]
     Active Substance: CLOBAZAM
     Indication: EPILEPSY
     Route: 048
     Dates: end: 20200122
  7. THERALENE [Suspect]
     Active Substance: TRIMEPRAZINE
     Indication: AGITATION
     Route: 048
     Dates: start: 20200114, end: 20200122
  8. MICROPAKINE [Concomitant]
     Active Substance: VALPROATE SODIUM

REACTIONS (3)
  - Somnolence [Recovered/Resolved]
  - Fall [Unknown]
  - Faecaloma [Recovered/Resolved]

NARRATIVE: CASE EVENT DATE: 20200121
